FAERS Safety Report 6821707-2 (Version None)
Quarter: 2010Q3

REPORT INFORMATION
  Report Type: 
  Country: None (occurrence: None)
  Receive Date: 20100702
  Receipt Date: 20100622
  Transmission Date: 20110219
  Serious: Yes (Hospitalization)
  Sender: FDA-Public Use
  Company Number: MSTR-NO-0902S-0051

PATIENT
  Age: 65 Year
  Sex: Female
  Weight: 60 kg

DRUGS (2)
  1. METASTRON [Suspect]
     Indication: METASTATIC PAIN
     Dosage: 118 MBQ, SINGLE DOSE, I.V.
     Route: 042
     Dates: start: 20080916, end: 20080916
  2. MEDROXYPROGESTERONE ACETATE (HYSRON-H) [Concomitant]

REACTIONS (8)
  - ANAEMIA [None]
  - BREAST CANCER METASTATIC [None]
  - HOT FLUSH [None]
  - MALIGNANT NEOPLASM PROGRESSION [None]
  - METASTASES TO KIDNEY [None]
  - METASTASES TO LIVER [None]
  - METASTASES TO LUNG [None]
  - MULTI-ORGAN FAILURE [None]
